FAERS Safety Report 10058650 (Version 2)
Quarter: 2014Q2

REPORT INFORMATION
  Report Type: Spontaneous
  Country: US (occurrence: US)
  Receive Date: 20140404
  Receipt Date: 20140516
  Transmission Date: 20141212
  Serious: No
  Sender: FDA-Public Use
  Company Number: US-PFIZER INC-2014095555

PATIENT
  Age: 73 Year
  Sex: Female
  Weight: 76.19 kg

DRUGS (1)
  1. LYRICA [Suspect]
     Indication: BACK PAIN
     Dosage: 150 MG, 3X/DAY
     Dates: start: 20140221, end: 20140401

REACTIONS (6)
  - Swelling face [Unknown]
  - Peripheral swelling [Unknown]
  - Mouth swelling [Unknown]
  - Anxiety [Unknown]
  - Tremor [Unknown]
  - Feeling abnormal [Unknown]
